FAERS Safety Report 19761487 (Version 1)
Quarter: 2021Q3

REPORT INFORMATION
  Report Type: Spontaneous
  Country: US (occurrence: US)
  Receive Date: 20210826
  Receipt Date: 20210826
  Transmission Date: 20211014
  Serious: Yes (Hospitalization)
  Sender: FDA-Public Use
  Company Number: None

PATIENT
  Sex: Female
  Weight: 37.5 kg

DRUGS (6)
  1. MERCAPTOPURINE. [Concomitant]
     Active Substance: MERCAPTOPURINE
  2. MERCAPTOPURINE. [Concomitant]
     Active Substance: MERCAPTOPURINE
  3. METHOTREXATE. [Concomitant]
     Active Substance: METHOTREXATE
  4. CYCLOPHOSPHAMIDE. [Suspect]
     Active Substance: CYCLOPHOSPHAMIDE
  5. PEG?L?ASPARAGOMASE (PEGASPRGASE, ONCOSPAR) [Concomitant]
  6. CYTARABINE. [Concomitant]
     Active Substance: CYTARABINE

REACTIONS (7)
  - Intracranial haematoma [None]
  - Respiration abnormal [None]
  - Unresponsive to stimuli [None]
  - Haemorrhage intracranial [None]
  - Hypertension [None]
  - Bradycardia [None]
  - Mydriasis [None]

NARRATIVE: CASE EVENT DATE: 20210819
